FAERS Safety Report 24961938 (Version 2)
Quarter: 2025Q1

REPORT INFORMATION
  Report Type: Spontaneous
  Country: US (occurrence: US)
  Receive Date: 20250212
  Receipt Date: 20250218
  Transmission Date: 20250409
  Serious: Yes (Hospitalization)
  Sender: PURDUE
  Company Number: US-MLMSERVICE-20250203-PI390071-00229-1

PATIENT
  Age: 56 Year
  Sex: Female

DRUGS (18)
  1. MORPHINE SULFATE [Suspect]
     Active Substance: MORPHINE SULFATE
     Indication: Cancer pain
     Route: 037
  2. MORPHINE SULFATE [Suspect]
     Active Substance: MORPHINE SULFATE
     Indication: Analgesic therapy
     Dosage: VOLUME 0.4 ML (2 MILLIGRAM, DAILY)
     Route: 037
  3. MORPHINE SULFATE [Suspect]
     Active Substance: MORPHINE SULFATE
     Dosage: 0.04 ML BOLUS (0.2 MILLIGRAM, Q8H)
     Route: 037
  4. MORPHINE SULFATE [Suspect]
     Active Substance: MORPHINE SULFATE
     Indication: Cancer pain
     Route: 037
  5. MORPHINE SULFATE [Suspect]
     Active Substance: MORPHINE SULFATE
     Indication: Analgesic therapy
     Dosage: VOLUME 0.4 ML (2 MILLIGRAM, DAILY)
     Route: 037
  6. MORPHINE SULFATE [Suspect]
     Active Substance: MORPHINE SULFATE
     Dosage: 0.04 ML BOLUS (0.2 MILLIGRAM, Q8H)
     Route: 037
  7. BUPIVACAINE [Concomitant]
     Active Substance: BUPIVACAINE
     Indication: Product used for unknown indication
     Route: 037
  8. BUPIVACAINE [Concomitant]
     Active Substance: BUPIVACAINE
     Indication: Cancer pain
     Dosage: 4 MILLIGRAM, DAILY
     Route: 037
  9. BUPIVACAINE [Concomitant]
     Active Substance: BUPIVACAINE
     Indication: Analgesic therapy
     Dosage: BOLUS (0.4 MILLIGRAM, Q8H)
     Route: 037
  10. ZICONOTIDE [Concomitant]
     Active Substance: ZICONOTIDE
     Indication: Product used for unknown indication
     Route: 037
  11. ZICONOTIDE [Concomitant]
     Active Substance: ZICONOTIDE
     Indication: Cancer pain
     Dosage: 0.4 MCG, DAILY
     Route: 037
  12. ZICONOTIDE [Concomitant]
     Active Substance: ZICONOTIDE
     Indication: Analgesic therapy
     Dosage: BOLUS (0.04 MCG, Q8H)
     Route: 037
  13. CITALOPRAM [Concomitant]
     Active Substance: CITALOPRAM
     Indication: Product used for unknown indication
     Dosage: 40 MILLIGRAM, DAILY
     Route: 065
  14. BACLOFEN [Concomitant]
     Active Substance: BACLOFEN
     Indication: Product used for unknown indication
     Dosage: NIGHTLY (10 MILLIGRAM, DAILY)
     Route: 065
  15. LORAZEPAM [Concomitant]
     Active Substance: LORAZEPAM
     Indication: Product used for unknown indication
     Dosage: AS NEEDED
     Route: 065
  16. METHYLPHENIDATE [Concomitant]
     Active Substance: METHYLPHENIDATE
     Indication: Product used for unknown indication
     Dosage: 10 MILLIGRAM, DAILY
     Route: 065
  17. APIXABAN [Concomitant]
     Active Substance: APIXABAN
     Indication: Product used for unknown indication
     Dosage: 5 MILLIGRAM, Q12H
     Route: 065
  18. ONDANSETRON [Concomitant]
     Active Substance: ONDANSETRON
     Indication: Product used for unknown indication
     Route: 065

REACTIONS (11)
  - Akathisia [Recovered/Resolved]
  - Sedation [Recovered/Resolved]
  - Device infusion issue [Recovered/Resolved]
  - Drug dose omission by device [Recovered/Resolved]
  - Drug withdrawal syndrome [Recovered/Resolved]
  - Pruritus [Unknown]
  - Altered state of consciousness [Recovered/Resolved]
  - Confusional state [Recovered/Resolved]
  - Anxiety [Recovered/Resolved]
  - Nausea [Recovered/Resolved]
  - Vomiting [Recovered/Resolved]
